FAERS Safety Report 11745932 (Version 2)
Quarter: 2015Q4

REPORT INFORMATION
  Report Type: Spontaneous
  Country: BR (occurrence: BR)
  Receive Date: 20151117
  Receipt Date: 20151130
  Transmission Date: 20160304
  Serious: Yes (Other)
  Sender: FDA-Public Use
  Company Number: PHHY2015BR149629

PATIENT
  Sex: Female
  Weight: 89 kg

DRUGS (1)
  1. EXFORGE HCT [Suspect]
     Active Substance: AMLODIPINE BESYLATE\HYDROCHLOROTHIAZIDE\VALSARTAN
     Indication: HYPERTENSION
     Dosage: 0.5 DF, QD IN THE MORNING
     Route: 048
     Dates: start: 201508

REACTIONS (10)
  - Aggression [Not Recovered/Not Resolved]
  - Irritability [Not Recovered/Not Resolved]
  - Obsessive-compulsive disorder [Not Recovered/Not Resolved]
  - Discomfort [Unknown]
  - Malaise [Unknown]
  - Hypotension [Recovered/Resolved]
  - Erythema [Unknown]
  - Off label use [Unknown]
  - Nervousness [Unknown]
  - Bipolar disorder [Not Recovered/Not Resolved]
